FAERS Safety Report 8884844 (Version 1)
Quarter: 2012Q4

REPORT INFORMATION
  Report Type: Report from Study
  Country: CA (occurrence: CA)
  Receive Date: 20121102
  Receipt Date: 20121102
  Transmission Date: 20130627
  Serious: Yes (Other)
  Sender: FDA-Public Use
  Company Number: CA-JNJFOC-20121012644

PATIENT
  Age: 67 None
  Sex: Male
  Weight: 84 kg

DRUGS (9)
  1. REMICADE [Suspect]
     Indication: CROHN^S DISEASE
     Route: 042
     Dates: start: 20120330
  2. REMICADE [Suspect]
     Indication: CROHN^S DISEASE
     Route: 042
     Dates: start: 20120824
  3. REMICADE [Suspect]
     Indication: CROHN^S DISEASE
     Route: 042
     Dates: start: 20121019
  4. BETNESOL [Concomitant]
     Route: 065
  5. CRESTOR [Concomitant]
     Route: 065
  6. HYDROCHLOROTHIAZIDE [Concomitant]
     Route: 065
  7. NORVASC [Concomitant]
     Route: 065
  8. ACTONEL [Concomitant]
     Route: 065
  9. BISOPROLOL [Concomitant]
     Route: 065

REACTIONS (8)
  - Gastrointestinal infection [Recovering/Resolving]
  - Rheumatoid arthritis [Unknown]
  - Intervertebral disc degeneration [Unknown]
  - Dizziness [Unknown]
  - Malaise [Unknown]
  - Rash erythematous [Recovered/Resolved]
  - Pruritus [Recovered/Resolved]
  - Infusion related reaction [Recovered/Resolved]
